FAERS Safety Report 16495763 (Version 1)
Quarter: 2019Q2

REPORT INFORMATION
  Report Type: Spontaneous
  Country: US (occurrence: US)
  Receive Date: 20190628
  Receipt Date: 20190628
  Transmission Date: 20190711
  Serious: Yes (Death)
  Sender: FDA-Public Use
  Company Number: US-ANIPHARMA-2019-US-011895

PATIENT
  Age: 92 Year
  Sex: Female

DRUGS (9)
  1. ARIMIDEX [Suspect]
     Active Substance: ANASTROZOLE
     Indication: BREAST CANCER
     Dosage: 1 MG TABLET PER DAY
     Route: 048
     Dates: start: 20180827, end: 20190528
  2. PRAVASTATIN. [Concomitant]
     Active Substance: PRAVASTATIN
  3. ISOSORBIDE MONONITRITE [Concomitant]
  4. MAGNISIUM OXIDE [Concomitant]
  5. METOPROLOL. [Concomitant]
     Active Substance: METOPROLOL
     Indication: HYPERTENSION
  6. PANTOPRAZOLE [Concomitant]
     Active Substance: PANTOPRAZOLE
  7. RANITIDINE. [Concomitant]
     Active Substance: RANITIDINE
  8. AMITRIPTYLINE [Concomitant]
     Active Substance: AMITRIPTYLINE
  9. UNSPECIFIED ORAL AGENT FOR DIABETES [Concomitant]
     Route: 048

REACTIONS (2)
  - Death [Fatal]
  - Back pain [Not Recovered/Not Resolved]
